FAERS Safety Report 26048798 (Version 1)
Quarter: 2025Q4

REPORT INFORMATION
  Report Type: Spontaneous
  Country: GB (occurrence: GB)
  Receive Date: 20251115
  Receipt Date: 20251115
  Transmission Date: 20260117
  Serious: Yes (Disabling, Other)
  Sender: AUROBINDO
  Company Number: GB-MHRA-MED-202511040827443950-SNDHY

PATIENT
  Sex: Female

DRUGS (1)
  1. ROSUVASTATIN [Suspect]
     Active Substance: ROSUVASTATIN
     Indication: Adverse drug reaction
     Dosage: 5 MILLIGRAM, DAILY
     Route: 065
     Dates: start: 20251017, end: 20251024

REACTIONS (1)
  - Visual impairment [Recovering/Resolving]

NARRATIVE: CASE EVENT DATE: 20251024
